FAERS Safety Report 8179831-0 (Version None)
Quarter: 2012Q1

REPORT INFORMATION
  Report Type: 
  Country: None (occurrence: None)
  Receive Date: 20120229
  Receipt Date: 20120229
  Transmission Date: 20120608
  Serious: Yes (Hospitalization)
  Sender: FDA-Public Use
  Company Number: None

PATIENT
  Sex: Male
  Weight: 89.5 kg

DRUGS (4)
  1. BEVACIZUMAB (RHUMAB VEGF) [Suspect]
     Dosage: 1800 MG
     Dates: end: 20120215
  2. FLUOROURACIL [Suspect]
     Dosage: 20324
     Dates: end: 20120215
  3. LEUCOVORIN CALCIUM [Suspect]
     Dosage: 1400 MG
     Dates: end: 20120215
  4. ELOXATIN [Suspect]
     Dosage: 0 MG
     Dates: end: 20110928

REACTIONS (1)
  - ACUTE MYOCARDIAL INFARCTION [None]
